FAERS Safety Report 4332075-2 (Version None)
Quarter: 2004Q2

REPORT INFORMATION
  Report Type: 
  Country: None (occurrence: None)
  Receive Date: 20040405
  Receipt Date: 20040129
  Transmission Date: 20050107
  Serious: Yes (Other)
  Sender: FDA-Public Use
  Company Number: JP-ROCHE-357776

PATIENT
  Age: 13 Year
  Sex: Female
  Weight: 45 kg

DRUGS (4)
  1. TAMIFLU [Suspect]
     Route: 048
     Dates: start: 20040122, end: 20040125
  2. PL [Suspect]
     Dosage: FORM REPORTED AS PACK. DRUG NAME REPORTED AS SELAPINA.
     Route: 048
     Dates: start: 20040122, end: 20040125
  3. ASVERIN [Concomitant]
     Indication: COUGH
     Route: 048
     Dates: start: 20040122, end: 20040125
  4. CARBOCISTEINE [Concomitant]
     Dosage: DRUG NAME REPORTED AS METHISTA.
     Route: 048
     Dates: start: 20040122, end: 20040125

REACTIONS (1)
  - VISUAL DISTURBANCE [None]
